FAERS Safety Report 14537167 (Version 1)
Quarter: 2018Q1

REPORT INFORMATION
  Report Type: Spontaneous
  Country: US (occurrence: US)
  Receive Date: 20180215
  Receipt Date: 20180215
  Transmission Date: 20180509
  Serious: No
  Sender: FDA-Public Use
  Company Number: US-MYLANLABS-2018M1008702

PATIENT
  Sex: Female

DRUGS (1)
  1. LIOTHYRONINE [Suspect]
     Active Substance: LIOTHYRONINE
     Indication: THYROIDECTOMY
     Dosage: 25 ?G, UNK
     Route: 048

REACTIONS (2)
  - Drug ineffective [Unknown]
  - Wrong technique in product usage process [None]
